FAERS Safety Report 8860489 (Version 2)
Quarter: 2013Q1

REPORT INFORMATION
  Report Type: Spontaneous
  Country: US (occurrence: US)
  Receive Date: 20121025
  Receipt Date: 20130102
  Transmission Date: 20140127
  Serious: Yes (Death)
  Sender: FDA-Public Use
  Company Number: US-ELI_LILLY_AND_COMPANY-US201210006384

PATIENT
  Age: 64 Year
  Sex: Male
  Weight: 78.01 kg

DRUGS (4)
  1. ALIMTA [Suspect]
     Indication: NON-SMALL CELL LUNG CANCER
     Dosage: 500 MG/M2, UNK
     Route: 042
     Dates: start: 20111118, end: 20120103
  2. FOLIC ACID [Concomitant]
     Dosage: 1 MG, UNK
     Dates: start: 20111101
  3. VITAMIN B12 [Concomitant]
     Dosage: 1000 MG, UNK
     Dates: start: 20111110
  4. CORTICOSTEROID NOS [Concomitant]
     Dosage: 4 MG, BID
     Dates: start: 20111121

REACTIONS (2)
  - Malignant neoplasm progression [Fatal]
  - Hospice care [Unknown]
